FAERS Safety Report 8607411-9 (Version None)
Quarter: 2012Q3

REPORT INFORMATION
  Report Type: 
  Country: None (occurrence: None)
  Receive Date: 20120731
  Receipt Date: 20120719
  Transmission Date: 20120928
  Serious: Yes (Death)
  Sender: FDA-Public Use
  Company Number: 0230507

PATIENT
  Age: 69 Year
  Sex: Male

DRUGS (1)
  1. TACHOSIL [Suspect]
     Indication: SURGERY

REACTIONS (6)
  - RENAL FAILURE [None]
  - ABDOMINAL DISTENSION [None]
  - ATRIAL FIBRILLATION [None]
  - HYPOTENSION [None]
  - ACUTE RESPIRATORY DISTRESS SYNDROME [None]
  - MULTI-ORGAN FAILURE [None]
